FAERS Safety Report 9851080 (Version 4)
Quarter: 2014Q4

REPORT INFORMATION
  Report Type: Spontaneous
  Country: US (occurrence: US)
  Receive Date: 20140128
  Receipt Date: 20141125
  Transmission Date: 20150529
  Serious: Yes (Hospitalization, Other)
  Sender: FDA-Public Use
  Company Number: US-VERTEX PHARMACEUTICALS INC-2014-000405

PATIENT
  Age: 34 Year
  Sex: Male

DRUGS (30)
  1. TOBI [Concomitant]
     Active Substance: TOBRAMYCIN
     Dosage: 75 MG, BID INHALED, EVERY OTHER MONTH
  2. BETAMETHASONE [Concomitant]
     Active Substance: BETAMETHASONE
     Dosage: 0-BID ADDED TO SINUS NEBULIZER
  3. IBUPROFEN. [Concomitant]
     Active Substance: IBUPROFEN
     Indication: PAIN
     Dosage: 400 MG, EVERY 6 HOURS, PRN
  4. ZOFRAN [Concomitant]
     Active Substance: ONDANSETRON HYDROCHLORIDE
     Indication: NAUSEA
     Dosage: 8 MG, EVERY 6-8 HOURS, PRN
     Route: 048
  5. XOPENEX [Concomitant]
     Active Substance: LEVALBUTEROL HYDROCHLORIDE
     Dosage: 1.25 MG, AEROSOL 4+X/DAY
  6. VITAMIN D3 [Concomitant]
     Active Substance: CHOLECALCIFEROL
     Dosage: 1000 IU, QD
  7. VITAMIN D [Concomitant]
     Active Substance: CHOLECALCIFEROL
     Dosage: 1 DF, BID
  8. VIAGRA [Concomitant]
     Active Substance: SILDENAFIL CITRATE
     Dosage: 50 MG, PRN
     Route: 048
  9. ADEK [Concomitant]
     Dosage: 1 DF, BID
  10. DIFFERIN [Concomitant]
     Active Substance: ADAPALENE
     Indication: ACNE
     Dosage: UNK, QD
     Route: 061
  11. LIDOCAINE. [Concomitant]
     Active Substance: LIDOCAINE
     Indication: CHEST PAIN
     Dosage: UNK, TID, PRN
     Route: 061
  12. PREDNISONE. [Concomitant]
     Active Substance: PREDNISONE
     Dosage: 15 MG, QD TAPERING
  13. PULMOZYME [Concomitant]
     Active Substance: DORNASE ALFA
     Dosage: 2.5 MG, AEROSOL
  14. ZENPEP [Concomitant]
     Active Substance: PANCRELIPASE\PANCRELIPASE AMYLASE\PANCRELIPASE LIPASE\PANCRELIPASE PROTEASE
     Dosage: 3-7 CAPS WITH MEALS, 0-3 CAPS WITH SNACK
  15. GUAIFENESIN. [Concomitant]
     Active Substance: GUAIFENESIN
     Dosage: 400MG, 3 DF, BID
  16. MUCINEX [Concomitant]
     Active Substance: GUAIFENESIN
     Dosage: 1 DF, BID
  17. PROBIOTICS [Concomitant]
     Active Substance: PROBIOTICS NOS
     Dosage: 1 DF, QD-BID
  18. KALYDECO [Suspect]
     Active Substance: IVACAFTOR
     Indication: CYSTIC FIBROSIS
     Dosage: 150 MG, BID
     Route: 048
     Dates: start: 20120308
  19. HYPERTONIC SALINE SOLUTION [Concomitant]
     Active Substance: SODIUM CHLORIDE
     Dosage: UNK, QD/ BID
  20. CAYSTON [Concomitant]
     Active Substance: AZTREONAM
     Dosage: 75 MG, TID ON OFF TOBI MONTH
  21. ADVAIR HFA [Concomitant]
     Active Substance: FLUTICASONE PROPIONATE\SALMETEROL XINAFOATE
     Dosage: 2 PUTTS WITH A SPACER, BID
  22. SCANDISHAKE/OTHER THERAPEUTIC PRODUCTS [Concomitant]
     Dosage: SEVERAL/DAY
  23. LEVOTHYROXIN [Concomitant]
     Active Substance: LEVOTHYROXINE
  24. HYDROXYCHLOROQUINE [Concomitant]
     Active Substance: HYDROXYCHLOROQUINE
  25. CENTRUM [Concomitant]
     Active Substance: VITAMINS
     Dosage: 1 DF, BID
  26. MEPHYTON [Concomitant]
     Active Substance: PHYTONADIONE
     Dosage: 5 MG, QW
  27. GAVISCON [Concomitant]
     Active Substance: ALUMINUM HYDROXIDE\MAGNESIUM CARBONATE
     Dosage: 1 DF, BID, PRN
  28. URSODIOL. [Concomitant]
     Active Substance: URSODIOL
     Dosage: 300 MG, BID
  29. LIDOCAINE. [Concomitant]
     Active Substance: LIDOCAINE
     Indication: COSTOCHONDRITIS
  30. LUNESTA [Concomitant]
     Active Substance: ESZOPICLONE
     Dosage: 2-3MG
     Route: 048

REACTIONS (4)
  - Infective pulmonary exacerbation of cystic fibrosis [Unknown]
  - Pneumonia [Recovered/Resolved]
  - Lung transplant [Recovering/Resolving]
  - Forced expiratory volume decreased [Unknown]

NARRATIVE: CASE EVENT DATE: 20131221
